FAERS Safety Report 9437383 (Version 2)
Quarter: 2013Q3

REPORT INFORMATION
  Report Type: Report from Study
  Country: KR (occurrence: KR)
  Receive Date: 20130802
  Receipt Date: 20130823
  Transmission Date: 20140515
  Serious: Yes (Hospitalization)
  Sender: FDA-Public Use
  Company Number: KR-EISAI INC-E2007-01220-CLI-KR

PATIENT
  Age: 17 Year
  Sex: Male
  Weight: 72 kg

DRUGS (8)
  1. E2007 (PERAMPANEL) [Suspect]
     Indication: PARTIAL SEIZURES
     Dosage: CORE STUDY-PLACEBO
     Route: 048
     Dates: start: 20121224, end: 2013
  2. E2007 (PERAMPANEL) [Suspect]
     Dosage: OPEN LABEL EXTENSION
     Route: 048
     Dates: start: 2013, end: 20130616
  3. E2007 (PERAMPANEL) [Suspect]
     Route: 048
     Dates: start: 20130617, end: 20130617
  4. E2007 (PERAMPANEL) [Suspect]
     Route: 048
     Dates: start: 20130618, end: 20130626
  5. LEVETIRACETAM [Concomitant]
     Indication: EPILEPSY
     Route: 048
     Dates: start: 20121113
  6. TOPIRAMATE [Concomitant]
     Indication: EPILEPSY
     Route: 048
     Dates: start: 20130429
  7. DIVALPROEX SODIUM [Concomitant]
     Indication: EPILEPSY
     Route: 048
     Dates: start: 20121113
  8. CLOBAZAM [Concomitant]
     Indication: EPILEPSY
     Dosage: 2.5 MG DAILY
     Route: 048
     Dates: start: 20130608

REACTIONS (1)
  - Aggression [Recovered/Resolved]
